FAERS Safety Report 6226292-4 (Version None)
Quarter: 2009Q2

REPORT INFORMATION
  Report Type: 
  Country: None (occurrence: None)
  Receive Date: 20090612
  Receipt Date: 20090529
  Transmission Date: 20091009
  Serious: No
  Sender: FDA-Public Use
  Company Number: US-ABBOTT-09P-163-0573208-00

PATIENT
  Sex: Female
  Weight: 99.88 kg

DRUGS (6)
  1. HUMIRA [Suspect]
     Indication: PSORIASIS
     Route: 058
     Dates: start: 20090430, end: 20090430
  2. HUMIRA [Suspect]
     Dosage: DAY 8
     Route: 058
     Dates: start: 20090507, end: 20090507
  3. HUMIRA [Suspect]
     Dates: start: 20090517
  4. HYDROCHLOROTHIAZIDE [Concomitant]
     Indication: BLOOD PRESSURE
     Dosage: 1 - 37.5/25 TABLET DAILY
     Route: 048
  5. ASPIRIN [Concomitant]
     Indication: DRUG USE FOR UNKNOWN INDICATION
     Route: 048
  6. SINUS MEDICATION [Concomitant]
     Indication: SINUS DISORDER

REACTIONS (2)
  - NASOPHARYNGITIS [None]
  - PSORIASIS [None]
